FAERS Safety Report 24803954 (Version 1)
Quarter: 2025Q1

REPORT INFORMATION
  Report Type: Spontaneous
  Country: ES (occurrence: ES)
  Receive Date: 20250103
  Receipt Date: 20250103
  Transmission Date: 20250408
  Serious: Yes (Other)
  Sender: TEVA
  Company Number: None

PATIENT
  Age: 43 Year
  Sex: Female

DRUGS (1)
  1. IMATINIB [Suspect]
     Active Substance: IMATINIB
     Indication: Gastrointestinal stromal tumour
     Dosage: IMATINIB TEVA FILM-COATED TABLETS EFG, 30 TABLETS
     Route: 048
     Dates: start: 20231018, end: 20240915

REACTIONS (6)
  - Dry skin [Unknown]
  - Product substitution issue [Unknown]
  - Iron overload [Unknown]
  - Thrombocytopenia [Recovered/Resolved]
  - Chapped lips [Unknown]
  - Anaemia [Recovered/Resolved]

NARRATIVE: CASE EVENT DATE: 20240624
